FAERS Safety Report 17157833 (Version 1)
Quarter: 2019Q4

REPORT INFORMATION
  Report Type: Spontaneous
  Country: US (occurrence: US)
  Receive Date: 20191213
  Receipt Date: 20191213
  Transmission Date: 20200122
  Serious: Yes (Hospitalization)
  Sender: FDA-Public Use
  Company Number: None

PATIENT
  Age: 85 Year
  Sex: Female
  Weight: 50.1 kg

DRUGS (7)
  1. MESALAMINE 1.6G BID [Concomitant]
  2. LORATADINE 10MG DAILY [Concomitant]
  3. FLUCONAZOLE 150MG DAILY [Concomitant]
  4. POTASSIUM 20MEQ DAILY [Concomitant]
  5. RIVASTIGMINE 9.5MG/24HR PATCH DAILY [Concomitant]
  6. RIVAROXABAN [Suspect]
     Active Substance: RIVAROXABAN
     Indication: ATRIAL FIBRILLATION
     Route: 048
     Dates: start: 20140507
  7. ATORVASTATIN 20MG DAILY [Concomitant]

REACTIONS (6)
  - Gastrointestinal haemorrhage [None]
  - Blood urea increased [None]
  - Acute kidney injury [None]
  - Haemoglobin decreased [None]
  - Dehydration [None]
  - Blood creatine increased [None]

NARRATIVE: CASE EVENT DATE: 20150527
